FAERS Safety Report 5629048-6 (Version None)
Quarter: 2008Q1

REPORT INFORMATION
  Report Type: 
  Country: None (occurrence: None)
  Receive Date: 20080216
  Receipt Date: 20080206
  Transmission Date: 20080703
  Serious: Yes (Other)
  Sender: FDA-Public Use
  Company Number: GB-PURDUE-USA_2008_0031309

PATIENT
  Sex: Female

DRUGS (1)
  1. CHLORHEXIDINE GLUCONATE [Suspect]
     Indication: DRUG ADMINISTRATION ERROR
     Route: 065

REACTIONS (2)
  - ACCIDENTAL EXPOSURE [None]
  - CAUSTIC INJURY [None]
